FAERS Safety Report 9202377 (Version 2)
Quarter: 2014Q1

REPORT INFORMATION
  Report Type: Spontaneous
  Country: US (occurrence: US)
  Receive Date: 20130401
  Receipt Date: 20140320
  Transmission Date: 20141002
  Serious: Yes (Other)
  Sender: FDA-Public Use
  Company Number: US-BAYER-2013-038486

PATIENT
  Age: 17 Year
  Sex: Female

DRUGS (4)
  1. YASMIN [Suspect]
     Route: 048
  2. YAZ [Suspect]
     Route: 048
  3. CLARINEX [DESLORATADINE] [Concomitant]
     Dosage: UNK UNK, PRN
     Dates: start: 20051127
  4. NASONEX [Concomitant]
     Dosage: UNK UNK, PRN
     Dates: start: 20051127

REACTIONS (7)
  - Gallbladder injury [None]
  - Cholelithiasis [None]
  - Pulmonary embolism [None]
  - Thrombosis [None]
  - Injury [None]
  - Emotional distress [None]
  - Pain [None]
